FAERS Safety Report 25610486 (Version 4)
Quarter: 2025Q4

REPORT INFORMATION
  Report Type: Spontaneous
  Country: JP (occurrence: JP)
  Receive Date: 20250728
  Receipt Date: 20251130
  Transmission Date: 20260117
  Serious: Yes (Hospitalization)
  Sender: NOVARTIS
  Company Number: JP-002147023-NVSJ2025JP007712

PATIENT
  Age: 85 Year
  Sex: Male
  Weight: 59.6 kg

DRUGS (8)
  1. ENTRESTO [Suspect]
     Active Substance: SACUBITRIL\VALSARTAN
     Indication: Hypertension
     Dosage: 100 MG, QD
     Route: 048
     Dates: start: 20230425, end: 20250722
  2. ENTRESTO [Suspect]
     Active Substance: SACUBITRIL\VALSARTAN
     Indication: Cardiac failure chronic
  3. MIRABEGRON [Suspect]
     Active Substance: MIRABEGRON
     Indication: Benign prostatic hyperplasia
     Dosage: 50 MG, QD
     Route: 065
     Dates: start: 20250527, end: 20250722
  4. JARDIANCE [Concomitant]
     Active Substance: EMPAGLIFLOZIN
     Indication: Cardiac failure chronic
     Dosage: 10 MG, QD
     Route: 048
     Dates: start: 20230425
  5. EDOXABAN TOSYLATE [Concomitant]
     Active Substance: EDOXABAN TOSYLATE
     Indication: Atrial fibrillation
     Dosage: 15 MG, QD
     Route: 048
     Dates: start: 20230425
  6. LANSOPRAZOLE [Concomitant]
     Active Substance: LANSOPRAZOLE
     Indication: Product used for unknown indication
     Dosage: 15 MG, QD
     Route: 048
     Dates: start: 20230425
  7. NAFTOPIDIL [Concomitant]
     Active Substance: NAFTOPIDIL
     Indication: Benign prostatic hyperplasia
     Dosage: 50 MG, QD
     Route: 048
     Dates: start: 20230425
  8. DUTASTERIDE [Concomitant]
     Active Substance: DUTASTERIDE
     Indication: Benign prostatic hyperplasia
     Dosage: 0.5 MG, QD
     Route: 048
     Dates: start: 20230425

REACTIONS (3)
  - Agranulocytosis [Recovered/Resolved]
  - Pyrexia [Unknown]
  - Oropharyngeal pain [Unknown]

NARRATIVE: CASE EVENT DATE: 20250719
